FAERS Safety Report 8196986-2 (Version None)
Quarter: 2012Q1

REPORT INFORMATION
  Report Type: 
  Country: None (occurrence: None)
  Receive Date: 20120227
  Receipt Date: 20111207
  Transmission Date: 20120608
  Serious: Yes (Hospitalization)
  Sender: FDA-Public Use
  Company Number: 336063

PATIENT
  Age: 54 Year
  Sex: Female
  Weight: 81.6 kg

DRUGS (5)
  1. METFORMIN HCL [Concomitant]
  2. GLIPIZIDE [Concomitant]
  3. ENALAPRIL MALEATE [Concomitant]
  4. VICTOZA [Suspect]
     Indication: TYPE 2 DIABETES MELLITUS
     Dosage: 1.2 MG, QD, SUBCUTANEOUS
     Route: 058
     Dates: start: 20110315, end: 20110720
  5. ALBUTEROL [Concomitant]

REACTIONS (1)
  - PANCREATITIS ACUTE [None]
